FAERS Safety Report 9532843 (Version 1)
Quarter: 2013Q2

REPORT INFORMATION
  Report Type: Spontaneous
  Country: US (occurrence: None)
  Receive Date: 20130418
  Receipt Date: 20130418
  Transmission Date: 20140414
  Serious: No
  Sender: FDA-Public Use
  Company Number: 2012PROUSA02288

PATIENT
  Age: 69 Year
  Sex: Male
  Weight: 102 kg

DRUGS (5)
  1. PROVENGE (SIPULEUCEL-T) SUSPENSION, 250 ML [Suspect]
     Indication: PROSTATE CANCER METASTATIC
     Route: 042
     Dates: start: 20121012, end: 20121012
  2. METFORMIN (METFORMIN HYDROCHLORIDE) [Concomitant]
  3. SIMVASTATIN (SIMVASTATIN) [Concomitant]
  4. LISINOPRIL (LISINOPRIL) [Concomitant]
  5. ASPIRIN (ACETYLSALICYLIC ACID) [Concomitant]

REACTIONS (1)
  - Malaise [None]
